FAERS Safety Report 6414025-8 (Version None)
Quarter: 2009Q4

REPORT INFORMATION
  Report Type: 
  Country: None (occurrence: None)
  Receive Date: 20091026
  Receipt Date: 20091019
  Transmission Date: 20100525
  Serious: Yes (Death)
  Sender: FDA-Public Use
  Company Number: PHHY2009BR45502

PATIENT
  Sex: Male

DRUGS (10)
  1. DIOVAN AMLO FIX [Suspect]
     Indication: HYPERTENSION
     Dosage: 1 TABLET (160/5 MG) DAILY
     Route: 048
  2. FLUOXETINE [Concomitant]
     Indication: DEPRESSION
     Dosage: 1 TABLET (20 MG) DAILY
     Route: 048
  3. GARDENAL [Concomitant]
     Indication: CEREBRAL ISCHAEMIA
     Dosage: 1 TABLET (100 MG) AT NIGHT
     Route: 048
  4. HIDANTAL [Concomitant]
     Indication: CEREBRAL ISCHAEMIA
     Dosage: 1 TABLET (100 MG) TID
     Route: 048
  5. FUROSEMIDE [Concomitant]
     Indication: FLUID REPLACEMENT
     Dosage: 1 TABLET (40 MG) EVERY OTHER DAY
     Route: 048
  6. ATENSINA [Concomitant]
     Dosage: 1 TABLET (150 MG) DAILY
     Route: 048
  7. AAS [Concomitant]
     Indication: ANTICOAGULANT THERAPY
     Dosage: 1 TABLET (100 MG) AFTER LUNCH
  8. HYDROCHLOROTHIAZIDE [Concomitant]
     Dosage: 1 TABLET (25 MG) DAILY
     Route: 048
  9. SUSTRATE [Concomitant]
     Dosage: 50 MG, TID
     Route: 048
  10. DIGOXIN [Concomitant]
     Dosage: 1 TABLET DAILY
     Route: 048

REACTIONS (3)
  - CONDITION AGGRAVATED [None]
  - LUNG NEOPLASM MALIGNANT [None]
  - RESPIRATORY FAILURE [None]
